FAERS Safety Report 6637300-0 (Version None)
Quarter: 2010Q1

REPORT INFORMATION
  Report Type: 
  Country: None (occurrence: None)
  Receive Date: 20100316
  Receipt Date: 20100217
  Transmission Date: 20100710
  Serious: No
  Sender: FDA-Public Use
  Company Number: US-ABBOTT-10P-163-0628047-00

PATIENT
  Age: 35 Year
  Sex: Male

DRUGS (2)
  1. TRILIPIX [Suspect]
     Indication: HYPERTRIGLYCERIDAEMIA
     Dosage: 4 IN ONE DAY FOR 4-5 DAY LAST SUNDAY
     Route: 048
     Dates: start: 20091001, end: 20100209
  2. TRILIPIX [Suspect]
     Route: 048
     Dates: start: 20100210, end: 20100214

REACTIONS (1)
  - INCORRECT DOSE ADMINISTERED [None]
